FAERS Safety Report 8736280 (Version 3)
Quarter: 2013Q2

REPORT INFORMATION
  Report Type: Report from Study
  Country: FR (occurrence: FR)
  Receive Date: 20120822
  Receipt Date: 20130502
  Transmission Date: 20140414
  Serious: Yes (Hospitalization, Other)
  Sender: FDA-Public Use
  Company Number: PHHY2012FR055955

PATIENT
  Age: 9 Year
  Sex: Male
  Weight: 20 kg

DRUGS (6)
  1. ACZ885 [Suspect]
     Indication: FAMILIAL MEDITERRANEAN FEVER
     Dosage: 33 MG, EVERY 8 WEEKS
     Route: 058
     Dates: start: 20110218, end: 20110629
  2. COLCHICINE [Concomitant]
     Indication: FAMILIAL MEDITERRANEAN FEVER
     Dosage: UNK
     Dates: start: 200510
  3. COLCHIMAX [Concomitant]
  4. PARACETAMOL [Concomitant]
     Indication: PYREXIA
     Dosage: 300 MG PER DAY
     Dates: start: 20110705
  5. IBUPROFENE [Concomitant]
     Indication: PYREXIA
     Dosage: UNK
     Dates: start: 20110713
  6. IBUPROFENE [Concomitant]
     Indication: HEADACHE

REACTIONS (7)
  - Arthralgia [Recovered/Resolved]
  - Familial mediterranean fever [Recovered/Resolved]
  - Pyrexia [Recovered/Resolved]
  - Headache [Recovered/Resolved]
  - Abdominal pain [Recovered/Resolved]
  - Diarrhoea [Recovered/Resolved]
  - Inappropriate schedule of drug administration [Unknown]
